FAERS Safety Report 24557823 (Version 1)
Quarter: 2024Q4

REPORT INFORMATION
  Report Type: Spontaneous
  Country: US (occurrence: US)
  Receive Date: 20241028
  Receipt Date: 20241028
  Transmission Date: 20250115
  Serious: Yes (Hospitalization, Other)
  Sender: MEITHEAL PHARMACEUTICALS
  Company Number: US-MEITHEAL-2024MPLIT00333

PATIENT
  Age: 48 Year
  Sex: Male

DRUGS (5)
  1. DEXMEDETOMIDINE [Suspect]
     Active Substance: DEXMEDETOMIDINE
     Indication: Sedation
     Route: 065
  2. DEXMEDETOMIDINE [Suspect]
     Active Substance: DEXMEDETOMIDINE
     Indication: Alcohol withdrawal syndrome
  3. OCTREOTIDE [Suspect]
     Active Substance: OCTREOTIDE
     Indication: Alcohol withdrawal syndrome
     Route: 065
  4. EPINEPHRINE [Concomitant]
     Active Substance: EPINEPHRINE
     Indication: Upper gastrointestinal haemorrhage
     Route: 065
  5. PROPOFOL [Concomitant]
     Active Substance: PROPOFOL
     Indication: Sedation
     Route: 065

REACTIONS (2)
  - Drug interaction [Unknown]
  - Sinus arrest [Recovered/Resolved]
